FAERS Safety Report 14712452 (Version 3)
Quarter: 2018Q3

REPORT INFORMATION
  Report Type: Report from Study
  Country: US (occurrence: US)
  Receive Date: 20180404
  Receipt Date: 20180913
  Transmission Date: 20181010
  Serious: Yes (Hospitalization)
  Sender: FDA-Public Use
  Company Number: US-ROCHE-2096926

PATIENT
  Age: 66 Year
  Sex: Female
  Weight: 79.8 kg

DRUGS (16)
  1. PERTUZUMAB. [Suspect]
     Active Substance: PERTUZUMAB
     Indication: BREAST CANCER
     Dosage: LOADING DOSE
     Route: 042
     Dates: start: 20171221
  2. CRESTOR [Concomitant]
     Active Substance: ROSUVASTATIN CALCIUM
     Route: 048
     Dates: start: 2012
  3. LEVOTHYROXINE. [Concomitant]
     Active Substance: LEVOTHYROXINE
     Route: 048
     Dates: start: 1996
  4. WELLBUTRIN XL [Concomitant]
     Active Substance: BUPROPION HYDROCHLORIDE
     Route: 048
     Dates: start: 1999
  5. METOPROLOL. [Concomitant]
     Active Substance: METOPROLOL
     Route: 048
     Dates: start: 20180323, end: 20180325
  6. ATEZOLIZUMAB. [Suspect]
     Active Substance: ATEZOLIZUMAB
     Indication: BREAST CANCER
     Dosage: AS PER PROTOCOL: ATEZOLIZUMAB 1200 MILLIGRAMS (MG) ADMINISTERED VIA INTRAVENOUS (IV) INFUSION ON DAY
     Route: 042
     Dates: start: 20171221
  7. DOCETAXEL. [Suspect]
     Active Substance: DOCETAXEL
     Indication: BREAST CANCER
     Dosage: MOST RECENT DOSE PRIOR TO EVENT: 15/MAR/2018?AS PER PROTOCOL: DOCETAXEL 75 MG/M^2 ADMINISTERED VIA I
     Route: 042
     Dates: start: 20180201, end: 20180505
  8. XYZAL [Concomitant]
     Active Substance: LEVOCETIRIZINE DIHYDROCHLORIDE
     Route: 048
     Dates: start: 2013
  9. PERTUZUMAB. [Suspect]
     Active Substance: PERTUZUMAB
     Dosage: MOST RECENT DOSE (MAINTAINANCE DOSE) PRIOR TO EVENT: 15/MAR/2018,420 MG/14 ML VIAL LAST DOSE PRIRO
     Route: 042
     Dates: end: 20180505
  10. TRAMADOL. [Concomitant]
     Active Substance: TRAMADOL
     Dosage: AS NEEDED
     Route: 065
     Dates: start: 2011
  11. COMPAZINE [Concomitant]
     Active Substance: PROCHLORPERAZINE MALEATE
     Route: 065
     Dates: start: 20171206
  12. OXYBUTYNIN. [Concomitant]
     Active Substance: OXYBUTYNIN CHLORIDE
     Route: 048
     Dates: start: 2014
  13. CALCIUM CARBONATE. [Concomitant]
     Active Substance: CALCIUM CARBONATE
     Route: 048
     Dates: start: 20180325
  14. TRASTUZUMAB. [Suspect]
     Active Substance: TRASTUZUMAB
     Indication: BREAST CANCER
     Dosage: LOADING DOSE
     Route: 042
     Dates: start: 20171221
  15. TRASTUZUMAB. [Suspect]
     Active Substance: TRASTUZUMAB
     Dosage: MOST RECENT DOSE (MAINTAINANCE DOSE) PRIOR TO EVENT: 15/MAR/2018.
     Route: 042
     Dates: end: 20180505
  16. CARBOPLATIN. [Suspect]
     Active Substance: CARBOPLATIN
     Indication: BREAST CANCER
     Dosage: MOST RECENT DOSE PRIOR TO EVENT: 15/MAR/2018?AS PER PROTOCOL: CARBOPLATIN WILL BE ADMINISTERED AT AN
     Route: 042
     Dates: start: 20180201, end: 20180505

REACTIONS (1)
  - Dehydration [Recovered/Resolved]

NARRATIVE: CASE EVENT DATE: 20180320
